FAERS Safety Report 9529984 (Version 1)
Quarter: 2013Q3

REPORT INFORMATION
  Report Type: Report from Study
  Country: FR (occurrence: FR)
  Receive Date: 20130917
  Receipt Date: 20130917
  Transmission Date: 20140515
  Serious: Yes (Other)
  Sender: FDA-Public Use
  Company Number: PHHY2013FR099666

PATIENT
  Sex: Male

DRUGS (2)
  1. STI571 [Suspect]
     Dosage: 400 MG, PER DAY
     Dates: start: 20040413
  2. TASIGNA [Suspect]
     Dosage: 600 MG, PER DAY

REACTIONS (4)
  - Retinal degeneration [Unknown]
  - Tendonitis [Unknown]
  - Muscle spasms [Unknown]
  - Tinnitus [Unknown]
